FAERS Safety Report 26212939 (Version 1)
Quarter: 2025Q4

REPORT INFORMATION
  Report Type: Report from Study
  Country: KR (occurrence: KR)
  Receive Date: 20251230
  Receipt Date: 20251230
  Transmission Date: 20260117
  Serious: Yes (Hospitalization)
  Sender: MYLAN
  Company Number: KR-MYLANLABS-2025M1110612

PATIENT
  Age: 74 Year
  Sex: Male
  Weight: 64 kg

DRUGS (8)
  1. LYRICA [Suspect]
     Active Substance: PREGABALIN
     Indication: Product used for unknown indication
     Dosage: 100 MILLIGRAM
     Route: 061
     Dates: start: 20250618, end: 20250916
  2. LYRICA [Suspect]
     Active Substance: PREGABALIN
     Dosage: 150 MILLIGRAM
     Route: 061
  3. TRESIBA [Concomitant]
     Active Substance: INSULIN DEGLUDEC
     Indication: Diabetes mellitus
     Dosage: UNK
  4. HUMALOG KWIKPEN [Concomitant]
     Active Substance: INSULIN LISPRO
     Indication: Diabetes mellitus
     Dosage: UNK
  5. GLUCOPHAGE XR [Concomitant]
     Active Substance: METFORMIN HYDROCHLORIDE
     Indication: Diabetes mellitus
     Dosage: UNK (EXTENDED RELEASE TABLET)
  6. LOBEGLITAZONE SULFATE [Concomitant]
     Active Substance: LOBEGLITAZONE SULFATE
     Indication: Diabetes mellitus
     Dosage: UNK
  7. CILOSTAN CR [Concomitant]
     Indication: Diabetic neuropathy
     Dosage: UNK
  8. Mytorin [Concomitant]
     Indication: Benign prostatic hyperplasia
     Dosage: UNK

REACTIONS (3)
  - Fall [Recovered/Resolved]
  - Humerus fracture [Recovered/Resolved]
  - Tibia fracture [Recovered/Resolved]

NARRATIVE: CASE EVENT DATE: 20251101
